FAERS Safety Report 6570200-3 (Version None)
Quarter: 2010Q1

REPORT INFORMATION
  Report Type: 
  Country: None (occurrence: None)
  Receive Date: 20100202
  Receipt Date: 20100202
  Transmission Date: 20100710
  Serious: Yes (Disabling)
  Sender: FDA-Public Use
  Company Number: None

PATIENT
  Age: 42 Year
  Sex: Female
  Weight: 92.0802 kg

DRUGS (1)
  1. LEVONORGESTREL [Suspect]
     Indication: CONTRACEPTION
     Dosage: 20MG DAILY INTRA-UTERINE
     Route: 015
     Dates: start: 20090809, end: 20091222

REACTIONS (8)
  - ABDOMINAL PAIN [None]
  - AFFECTIVE DISORDER [None]
  - ASTHMA [None]
  - BREAST TENDERNESS [None]
  - CHEST DISCOMFORT [None]
  - DYSFUNCTIONAL UTERINE BLEEDING [None]
  - DYSPNOEA [None]
  - VAGINAL HAEMORRHAGE [None]
